FAERS Safety Report 14719363 (Version 6)
Quarter: 2021Q1

REPORT INFORMATION
  Report Type: Spontaneous
  Country: US (occurrence: US)
  Receive Date: 20180405
  Receipt Date: 20210309
  Transmission Date: 20210419
  Serious: Yes (Hospitalization, Other)
  Sender: FDA-Public Use
  Company Number: US-TEVA-2018-US-877297

PATIENT
  Age: 65 Year
  Sex: Female
  Weight: 98.9 kg

DRUGS (20)
  1. MONTELUKAST [Concomitant]
     Active Substance: MONTELUKAST SODIUM
  2. LOSARTAN. [Concomitant]
     Active Substance: LOSARTAN
  3. TOPROLXL [Concomitant]
     Route: 065
  4. NITROFURANTOIN MACROCRYSTALS [Suspect]
     Active Substance: NITROFURANTOIN
     Indication: URINARY TRACT INFECTION
     Dosage: 100 MILLIGRAM DAILY;
     Route: 065
     Dates: start: 201607, end: 20170130
  5. ROZEREM [Concomitant]
     Active Substance: RAMELTEON
     Dosage: 8 MG:1 TABLET
     Route: 065
  6. LOVASTATIN. [Concomitant]
     Active Substance: LOVASTATIN
     Route: 065
  7. RESPIMATE [Concomitant]
  8. METOPROLOL. [Concomitant]
     Active Substance: METOPROLOL
  9. PANTOPRAZOLE [Concomitant]
     Active Substance: PANTOPRAZOLE
  10. MACROBID [Suspect]
     Active Substance: NITROFURANTOIN\NITROFURANTOIN MONOHYDRATE
     Route: 065
     Dates: start: 201612, end: 201701
  11. PRILOSEC [Concomitant]
     Active Substance: OMEPRAZOLE MAGNESIUM
     Route: 065
  12. ULTRAM [Concomitant]
     Active Substance: TRAMADOL HYDROCHLORIDE
     Route: 065
  13. YUPELRI [Concomitant]
     Active Substance: REVEFENACIN
     Dosage: FORM OF ADMIN: NEBULIZATION
  14. MYRBETRIQ [Concomitant]
     Active Substance: MIRABEGRON
     Route: 065
  15. ASPIRIN. [Concomitant]
     Active Substance: ASPIRIN
     Dosage: 81 MILLIGRAM DAILY;
     Route: 048
  16. NAPROXEN SODIUM. [Concomitant]
     Active Substance: NAPROXEN SODIUM
     Route: 065
  17. MECLIZINE [Concomitant]
     Active Substance: MECLIZINE HYDROCHLORIDE
  18. BUSPAR [Concomitant]
     Active Substance: BUSPIRONE HYDROCHLORIDE
     Route: 065
  19. MACROBID [Suspect]
     Active Substance: NITROFURANTOIN\NITROFURANTOIN MONOHYDRATE
     Route: 065
     Dates: start: 201610
  20. COZAAR [Concomitant]
     Active Substance: LOSARTAN POTASSIUM
     Route: 065

REACTIONS (8)
  - Illness [Recovering/Resolving]
  - Product prescribing error [Unknown]
  - Bedridden [Unknown]
  - Dyspnoea [Unknown]
  - Pulmonary fibrosis [Recovering/Resolving]
  - Interstitial lung disease [Recovering/Resolving]
  - Drug hypersensitivity [Unknown]
  - Toxicity to various agents [Unknown]

NARRATIVE: CASE EVENT DATE: 20161215
